FAERS Safety Report 6878559-4 (Version None)
Quarter: 2010Q3

REPORT INFORMATION
  Report Type: 
  Country: None (occurrence: None)
  Receive Date: 20100728
  Receipt Date: 20100714
  Transmission Date: 20110219
  Serious: Yes (Death, Hospitalization)
  Sender: FDA-Public Use
  Company Number: A0804163A

PATIENT
  Age: 56 Year
  Sex: Male
  Weight: 90.9 kg

DRUGS (12)
  1. AVANDIA [Suspect]
     Dosage: 4MG TWICE PER DAY
     Route: 048
     Dates: start: 19991109, end: 20020101
  2. PREDNISOLONE ACETATE [Concomitant]
  3. COSOPT [Concomitant]
  4. PRINIVIL [Concomitant]
  5. CLONIDINE [Concomitant]
  6. LABETALOL HCL [Concomitant]
  7. GLIPIZIDE [Concomitant]
  8. NORVASC [Concomitant]
  9. CATAPRES [Concomitant]
  10. COZAAR [Concomitant]
  11. DILANTIN [Concomitant]
  12. GLUCOPHAGE [Concomitant]

REACTIONS (4)
  - CARDIAC FAILURE CONGESTIVE [None]
  - CEREBRAL HAEMORRHAGE [None]
  - HAEMORRHAGIC STROKE [None]
  - UROSEPSIS [None]
